FAERS Safety Report 24303153 (Version 1)
Quarter: 2024Q3

REPORT INFORMATION
  Report Type: Spontaneous
  Country: US (occurrence: None)
  Receive Date: 20240909
  Receipt Date: 20240909
  Transmission Date: 20241016
  Serious: Yes (Death)
  Sender: Public
  Company Number: None

PATIENT
  Age: 78 Year
  Sex: Female

DRUGS (11)
  1. PROLIA [Suspect]
     Active Substance: DENOSUMAB
     Indication: Osteoporosis
     Dosage: OTHER FREQUENCY : EVERY 6 MONTHS;?
     Route: 058
     Dates: start: 20230111, end: 20240606
  2. HYDRALAZINE [Concomitant]
  3. ALBUTEROL [Concomitant]
  4. BROVANA [Concomitant]
  5. BUDESONIDE [Concomitant]
     Active Substance: BUDESONIDE
  6. YUPELRI [Concomitant]
  7. SINGULAIR [Concomitant]
  8. AZITHRPMYCIN [Concomitant]
  9. BENAZEPRIL [Concomitant]
  10. BUPROPION [Concomitant]
  11. COREG [Concomitant]
     Active Substance: CARVEDILOL

REACTIONS (1)
  - Death [None]

NARRATIVE: CASE EVENT DATE: 20240606
